FAERS Safety Report 12952062 (Version 1)
Quarter: 2016Q4

REPORT INFORMATION
  Report Type: Spontaneous
  Country: US (occurrence: US)
  Receive Date: 20161117
  Receipt Date: 20161117
  Transmission Date: 20170207
  Serious: No
  Sender: FDA-Public Use
  Company Number: US-SA-2016SA191542

PATIENT
  Sex: Female

DRUGS (10)
  1. TOUJEO [Suspect]
     Active Substance: INSULIN GLARGINE
     Dosage: DOSE:8 UNIT(S)
     Route: 065
     Dates: start: 2016
  2. TOUJEO [Suspect]
     Active Substance: INSULIN GLARGINE
     Dosage: DOSE:12 UNIT(S)
     Route: 065
     Dates: start: 2016
  3. SOLOSTAR [Concomitant]
     Active Substance: DEVICE
     Dates: start: 2016
  4. SOLOSTAR [Concomitant]
     Active Substance: DEVICE
     Dates: start: 2016
  5. TOUJEO [Suspect]
     Active Substance: INSULIN GLARGINE
     Dosage: DOSE:5 UNIT(S)
     Route: 065
     Dates: start: 2016
  6. TOUJEO [Suspect]
     Active Substance: INSULIN GLARGINE
     Dosage: DOSE:34 UNIT(S)
     Route: 065
     Dates: start: 2016
  7. SOLOSTAR [Concomitant]
     Active Substance: DEVICE
     Dates: start: 2016
  8. GLIPIZIDE. [Concomitant]
     Active Substance: GLIPIZIDE
  9. SOLOSTAR [Concomitant]
     Active Substance: DEVICE
     Dates: start: 2016
  10. NOVOLOG [Concomitant]
     Active Substance: INSULIN ASPART

REACTIONS (2)
  - Drug ineffective [Unknown]
  - Blood glucose abnormal [Unknown]
